FAERS Safety Report 9862049 (Version 1)
Quarter: 2014Q1

REPORT INFORMATION
  Report Type: Spontaneous
  Country: PL (occurrence: PL)
  Receive Date: 20140203
  Receipt Date: 20140203
  Transmission Date: 20141002
  Serious: Yes (Hospitalization)
  Sender: FDA-Public Use
  Company Number: PL-JNJFOC-20140114507

PATIENT
  Age: 71 Year
  Sex: Female
  Weight: 68 kg

DRUGS (1)
  1. CAELYX [Suspect]
     Indication: OVARIAN CANCER
     Route: 042
     Dates: start: 20131022, end: 201311

REACTIONS (1)
  - Skin reaction [Recovering/Resolving]
